FAERS Safety Report 8599840 (Version 3)
Quarter: 2013Q2

REPORT INFORMATION
  Report Type: Spontaneous
  Country: CA (occurrence: CA)
  Receive Date: 20120605
  Receipt Date: 20130627
  Transmission Date: 20140414
  Serious: Yes (Other)
  Sender: FDA-Public Use
  Company Number: CA-AMGEN-CANSP2012032601

PATIENT
  Age: 48 Year
  Sex: Female
  Weight: 27.16 kg

DRUGS (14)
  1. ENBREL [Suspect]
     Indication: PSORIASIS
     Dosage: 50 MG, 2 TIMES/WK
     Route: 058
     Dates: start: 20101013, end: 20130530
  2. PREVEX B [Concomitant]
     Indication: PSORIASIS
     Dosage: 0.1 % CR, UNK
     Route: 061
  3. FUCIDIN                            /00065701/ [Concomitant]
     Indication: FURUNCLE
     Dosage: UNK
     Route: 061
     Dates: start: 20121016
  4. REMICADE [Concomitant]
     Indication: PSORIASIS
     Dosage: 300 MG, EVERY 8 WEEKS
     Dates: start: 20130606
  5. TOPICORT                           /00028604/ [Concomitant]
     Indication: PSORIASIS
     Dosage: 0.25 %, UNK
     Route: 061
     Dates: start: 2010
  6. ASACOL [Concomitant]
     Indication: COLITIS ULCERATIVE
     Dosage: 1.200 MG, TID
     Route: 048
     Dates: start: 2012
  7. CORTIFOAM [Concomitant]
     Indication: COLITIS ULCERATIVE
     Dosage: 10 %, 2 TIMES/WK
     Dates: start: 2012
  8. AMINOSALICYLIC ACID [Concomitant]
     Indication: COLITIS ULCERATIVE
     Dosage: 400 MG (2 PILLS), THREE TIMES DAY
  9. VITAMIN B12                        /00056201/ [Concomitant]
     Indication: ROUTINE HEALTH MAINTENANCE
     Dosage: 1000 MUG, QWK
     Dates: start: 20120511
  10. VITAMIN B12                        /00056201/ [Concomitant]
     Indication: VITAMIN B12 DEFICIENCY
  11. ACETAMINOPHEN [Concomitant]
     Dosage: 1000 MG, UNK
     Route: 048
  12. HYDROCORTISONE [Concomitant]
     Indication: FURUNCLE
     Dosage: UNK
  13. FLUTICASONE [Concomitant]
     Indication: RHINITIS ALLERGIC
     Dosage: 27.5 MG, UNK
  14. SALBUTAMOL [Concomitant]
     Indication: RHINITIS ALLERGIC
     Dosage: UNK

REACTIONS (5)
  - Diarrhoea haemorrhagic [Not Recovered/Not Resolved]
  - Colitis ulcerative [Not Recovered/Not Resolved]
  - Platelet count increased [Not Recovered/Not Resolved]
  - Blood test abnormal [Not Recovered/Not Resolved]
  - Gastrointestinal infection [Not Recovered/Not Resolved]
